FAERS Safety Report 21054236 (Version 1)
Quarter: 2022Q3

REPORT INFORMATION
  Report Type: Spontaneous
  Country: US (occurrence: None)
  Receive Date: 20220707
  Receipt Date: 20220707
  Transmission Date: 20221027
  Serious: Yes (Other)
  Sender: FDA-Public Use
  Company Number: None

PATIENT
  Age: 58 Year
  Sex: Female
  Weight: 78.75 kg

DRUGS (3)
  1. CLENPIQ [Suspect]
     Active Substance: ANHYDROUS CITRIC ACID\MAGNESIUM OXIDE\SODIUM PICOSULFATE
     Indication: Colonoscopy
     Dosage: OTHER STRENGTH : PER 160 ML BOTTLE;?OTHER QUANTITY : 1 BOTTLES;?FREQUENCY : TWICE A DAY;?
     Route: 048
     Dates: start: 20220705, end: 20220705
  2. LEVOTHYROXINE [Concomitant]
     Active Substance: LEVOTHYROXINE
  3. LIOTHYRONINE [Concomitant]
     Active Substance: LIOTHYRONINE

REACTIONS (3)
  - Dizziness [None]
  - Abdominal pain [None]
  - Mobility decreased [None]

NARRATIVE: CASE EVENT DATE: 20220705
